FAERS Safety Report 6161726-5 (Version None)
Quarter: 2009Q2

REPORT INFORMATION
  Report Type: 
  Country: None (occurrence: None)
  Receive Date: 20090421
  Receipt Date: 20090408
  Transmission Date: 20091009
  Serious: Yes (Other)
  Sender: FDA-Public Use
  Company Number: US-ROCHE-626564

PATIENT
  Age: 89 Year
  Sex: Female

DRUGS (7)
  1. BONIVA [Suspect]
     Indication: OSTEOPOROSIS
     Route: 065
  2. FUROSEMIDE [Concomitant]
  3. ASPIRIN [Concomitant]
     Dosage: DRUG REPORTED: BABY ASPIRIN
  4. AVAPRO [Concomitant]
  5. TRAMADOL HCL [Concomitant]
     Dosage: DRUG REPORTED: TRAMADOL / APAP
  6. CENTRUM SILVER [Concomitant]
  7. MULTIVITAMIN [Concomitant]

REACTIONS (4)
  - BLADDER NEOPLASM [None]
  - BONE PAIN [None]
  - MACULAR DEGENERATION [None]
  - MUSCULOSKELETAL STIFFNESS [None]
